FAERS Safety Report 8228219-2 (Version None)
Quarter: 2012Q1

REPORT INFORMATION
  Report Type: 
  Country: None (occurrence: None)
  Receive Date: 20120322
  Receipt Date: 20111128
  Transmission Date: 20120608
  Serious: No
  Sender: FDA-Public Use
  Company Number: US-BRISTOL-MYERS SQUIBB COMPANY-16252926

PATIENT
  Age: 56 Year
  Sex: Male
  Weight: 107 kg

DRUGS (3)
  1. LIPITOR [Concomitant]
     Indication: BLOOD PRESSURE
  2. ERBITUX [Suspect]
     Indication: THROAT CANCER
     Dosage: NO OF DOSES:04 LAST ADMINISTERED ON 28NOV11.
  3. HYDROCODONE BITARTRATE [Concomitant]
     Dosage: HYDROCODONE ELIXIR

REACTIONS (5)
  - SCAB [None]
  - OROPHARYNGEAL PAIN [None]
  - HAEMORRHAGE [None]
  - CANDIDIASIS [None]
  - RASH [None]
